FAERS Safety Report 6559381-5 (Version None)
Quarter: 2010Q1

REPORT INFORMATION
  Report Type: 
  Country: None (occurrence: None)
  Receive Date: 20100129
  Receipt Date: 20090901
  Transmission Date: 20100710
  Serious: No
  Sender: FDA-Public Use
  Company Number: US-ABBOTT-09P-163-0594578-00

PATIENT
  Sex: Male
  Weight: 85.352 kg

DRUGS (3)
  1. HUMIRA [Suspect]
     Indication: CROHN'S DISEASE
     Dosage: TWO 40MG/0.8ML PENS
     Route: 058
     Dates: start: 20090816
  2. TRAMADOL [Concomitant]
     Indication: CROHN'S DISEASE
     Route: 048
  3. TRAZODONE [Concomitant]
     Indication: DEPRESSION
     Route: 048

REACTIONS (1)
  - INCORRECT DOSE ADMINISTERED [None]
